FAERS Safety Report 7001016-1 (Version None)
Quarter: 2010Q3

REPORT INFORMATION
  Report Type: 
  Country: None (occurrence: None)
  Receive Date: 20100920
  Receipt Date: 20071009
  Transmission Date: 20110219
  Serious: Yes (Other)
  Sender: FDA-Public Use
  Company Number: US-ASTRAZENECA-2006UW23217

PATIENT
  Age: 53 Year
  Sex: Female
  Weight: 71.7 kg

DRUGS (17)
  1. SEROQUEL [Suspect]
     Indication: DEPRESSION
     Route: 048
     Dates: start: 19910101
  2. SEROQUEL [Suspect]
     Dosage: STRENGTH: 25 MG, 300 MG. DOSE: 50 MG TO 300 MG DAILY
     Route: 048
     Dates: start: 20011211
  3. TRAZODONE HCL [Concomitant]
     Dates: start: 20000228
  4. TRAZODONE HCL [Concomitant]
  5. REMERON [Concomitant]
     Dates: start: 20000228
  6. EFFEXOR [Concomitant]
     Dosage: STRENGTH: 75 MG, 150 MG. DOSE: 75 MG TO 150 MG DAILY
     Route: 048
     Dates: start: 20011211
  7. KLONOPIN [Concomitant]
     Dosage: STRENGTH: 0.5 MG, 1 MG. DOSE: 1 MG TO 3 MG DAILY
     Route: 048
     Dates: start: 20011211
  8. VISTARIL [Concomitant]
     Route: 048
     Dates: start: 20011211
  9. VERAPAMIL HYDROCHLORIDE [Concomitant]
     Route: 048
     Dates: start: 20030101
  10. HYDROCHLOROTHIAZIDE [Concomitant]
     Route: 048
     Dates: start: 20030422
  11. LOTENSIN [Concomitant]
     Route: 048
     Dates: start: 20061013
  12. LIPITOR [Concomitant]
     Route: 048
     Dates: start: 20061013
  13. NEXIUM [Concomitant]
     Dosage: STRENGTH: 20-40 MG. DOSE 40 MG DAILY
     Route: 048
     Dates: start: 20040701
  14. RELPAX [Concomitant]
     Route: 048
     Dates: start: 20050106
  15. PREMARIN [Concomitant]
     Dosage: DOSE: 0.625 MG OVER 5 MG ONE TAB Q DAY
     Dates: start: 20000228
  16. PROVERA [Concomitant]
     Dates: start: 20000228
  17. NEURONTIN [Concomitant]
     Route: 048
     Dates: start: 20070305

REACTIONS (3)
  - CEREBROVASCULAR ACCIDENT [None]
  - DIABETES MELLITUS [None]
  - TYPE 2 DIABETES MELLITUS [None]
